FAERS Safety Report 11046519 (Version 1)
Quarter: 2015Q2

REPORT INFORMATION
  Report Type: Spontaneous
  Country: US (occurrence: US)
  Receive Date: 20150420
  Receipt Date: 20150420
  Transmission Date: 20150821
  Serious: No
  Sender: FDA-Public Use
  Company Number: US-TEVA-553212USA

PATIENT
  Sex: Female

DRUGS (1)
  1. NICOTINIC ACID [Suspect]
     Active Substance: NIACIN
     Route: 065
     Dates: start: 201503

REACTIONS (2)
  - Product quality issue [Unknown]
  - Flushing [Unknown]
